FAERS Safety Report 10186346 (Version 1)
Quarter: 2014Q2

REPORT INFORMATION
  Report Type: Spontaneous
  Country: US (occurrence: US)
  Receive Date: 20140521
  Receipt Date: 20140521
  Transmission Date: 20141212
  Serious: No
  Sender: FDA-Public Use
  Company Number: US-ASTRAZENECA-2014SE11303

PATIENT
  Age: 7 Year
  Sex: Male
  Weight: 35.8 kg

DRUGS (5)
  1. PULMICORT FLEXHALER [Suspect]
     Indication: MULTIPLE ALLERGIES
     Dosage: 90 MCG, TAKEN 1 INHALATION DAILY
     Route: 055
     Dates: start: 201402
  2. PULMICORT FLEXHALER [Suspect]
     Indication: ASTHMA
     Dosage: 90 MCG, TAKEN 1 INHALATION DAILY
     Route: 055
     Dates: start: 201402
  3. SINGULAIR [Concomitant]
     Dosage: UNKNOWN HS
  4. XOPENEX [Concomitant]
     Indication: PROPHYLAXIS
     Dosage: UNKNOWN PRN
  5. PULMICORT RESPULES [Concomitant]
     Dosage: UNKNOWN UNK

REACTIONS (6)
  - Dyspnoea [Not Recovered/Not Resolved]
  - Wheezing [Not Recovered/Not Resolved]
  - Condition aggravated [Not Recovered/Not Resolved]
  - Intentional product misuse [Unknown]
  - Circumstance or information capable of leading to medication error [Unknown]
  - Intentional product misuse [Unknown]
